FAERS Safety Report 25534336 (Version 1)
Quarter: 2025Q3

REPORT INFORMATION
  Report Type: Spontaneous
  Country: CA (occurrence: CA)
  Receive Date: 20250709
  Receipt Date: 20250709
  Transmission Date: 20251020
  Serious: Yes (Other)
  Sender: PFIZER
  Company Number: CA-PFIZER INC-202500137999

PATIENT
  Age: 79 Year
  Sex: Male

DRUGS (2)
  1. ABRILADA [Suspect]
     Active Substance: ADALIMUMAB-AFZB
     Indication: Crohn^s disease
     Dosage: 80 MG, WEEKLY
     Route: 058
  2. ABRILADA [Suspect]
     Active Substance: ADALIMUMAB-AFZB
     Route: 058

REACTIONS (6)
  - Abdominal pain [Unknown]
  - Frequent bowel movements [Unknown]
  - Gastrointestinal sounds abnormal [Unknown]
  - Moaning [Unknown]
  - Off label use [Unknown]
  - Off label use [Unknown]
